FAERS Safety Report 5338235-6 (Version None)
Quarter: 2007Q2

REPORT INFORMATION
  Report Type: 
  Country: None (occurrence: None)
  Receive Date: 20070327
  Receipt Date: 20070118
  Transmission Date: 20071010
  Serious: Yes (Other)
  Sender: FDA-Public Use
  Company Number: 227006

PATIENT
  Age: 61 Year
  Sex: Female
  Weight: 70.7 kg

DRUGS (6)
  1. AVASTIN [Suspect]
     Indication: COLORECTAL CANCER METASTATIC
     Dosage: 290 MG, Q2W, INTRAVENOUS
     Route: 042
     Dates: start: 20050527
  2. LEUCOVORIN CALCIUM [Concomitant]
  3. FLUOROURACIL [Concomitant]
  4. ALOXI [Concomitant]
  5. DECADRON [Concomitant]
  6. ARANESP [Concomitant]

REACTIONS (2)
  - NEPHROTIC SYNDROME [None]
  - PROTEINURIA [None]
